FAERS Safety Report 10047550 (Version 2)
Quarter: 2014Q2

REPORT INFORMATION
  Report Type: Spontaneous
  Country: US (occurrence: US)
  Receive Date: 20140331
  Receipt Date: 20140415
  Transmission Date: 20141212
  Serious: Yes (Other)
  Sender: FDA-Public Use
  Company Number: US-JNJFOC-20140313555

PATIENT
  Sex: Male
  Weight: 79.38 kg

DRUGS (10)
  1. KETOCONAZOLE 2% [Suspect]
     Route: 061
  2. KETOCONAZOLE 2% [Suspect]
     Indication: SEBORRHOEIC DERMATITIS
     Dosage: ONE APPLICATION
     Route: 061
     Dates: start: 2012, end: 2012
  3. ALBUTEROL [Concomitant]
     Indication: ASTHMA
     Route: 055
  4. ADVAIR DISKUS [Concomitant]
     Indication: ASTHMA
     Dosage: 1 PUFF^1-50^
     Route: 055
  5. MONTELUKAST [Concomitant]
     Indication: ASTHMA
     Dosage: 1 PUFF^1-50^
     Route: 048
  6. LORATADINE [Concomitant]
     Indication: ASTHMA
     Dosage: 1 PUFF^1-50^
     Route: 048
  7. LORATADINE [Concomitant]
     Indication: MULTIPLE ALLERGIES
     Dosage: 1 PUFF^1-50^
     Route: 048
  8. HYDROCHLOROTHIAZIDE [Concomitant]
     Indication: HYPERTENSION
     Dosage: 1 PUFF^1-50^
     Route: 048
  9. OMEPRAZOLE [Concomitant]
     Indication: GASTROOESOPHAGEAL REFLUX DISEASE
     Dosage: 1 PUFF^1-50^
     Route: 048
  10. ATROVENT [Concomitant]
     Indication: ASTHMA
     Dosage: 2 PUFF
     Route: 055

REACTIONS (6)
  - Pruritus [Not Recovered/Not Resolved]
  - Asthma [Not Recovered/Not Resolved]
  - Hypersensitivity [Not Recovered/Not Resolved]
  - Skin disorder [Not Recovered/Not Resolved]
  - Alopecia [Unknown]
  - Drug ineffective [Unknown]
